FAERS Safety Report 6867939-9 (Version None)
Quarter: 2010Q3

REPORT INFORMATION
  Report Type: 
  Country: None (occurrence: None)
  Receive Date: 20100722
  Receipt Date: 20080510
  Transmission Date: 20110219
  Serious: No
  Sender: FDA-Public Use
  Company Number: US-PFIZER INC-2008041155

PATIENT
  Sex: Male
  Weight: 79.09 kg

DRUGS (2)
  1. CHANTIX [Suspect]
     Indication: SMOKING CESSATION THERAPY
     Dates: start: 20080507
  2. LUNESTA [Concomitant]
     Indication: INSOMNIA

REACTIONS (1)
  - INSOMNIA [None]
